FAERS Safety Report 14687280 (Version 1)
Quarter: 2018Q1

REPORT INFORMATION
  Report Type: Spontaneous
  Country: US (occurrence: US)
  Receive Date: 20180328
  Receipt Date: 20180328
  Transmission Date: 20180509
  Serious: Yes (Other)
  Sender: FDA-Public Use
  Company Number: US-BRISTOL-MYERS SQUIBB COMPANY-BMS-2018-027545

PATIENT
  Age: 67 Year
  Sex: Male

DRUGS (1)
  1. HYDROXYUREA. [Suspect]
     Active Substance: HYDROXYUREA
     Indication: POLYCYTHAEMIA VERA
     Dosage: 1 DF, UNK
     Route: 065

REACTIONS (9)
  - Skin hyperpigmentation [Unknown]
  - Squamous cell carcinoma of skin [Unknown]
  - Anaemia macrocytic [Unknown]
  - Normochromic anaemia [Unknown]
  - Ichthyosis [Unknown]
  - Prescribed overdose [Unknown]
  - Hyperkeratosis [Unknown]
  - Actinic keratosis [Unknown]
  - Dermatomyositis [Unknown]
